FAERS Safety Report 6996341-4 (Version None)
Quarter: 2010Q3

REPORT INFORMATION
  Report Type: 
  Country: None (occurrence: None)
  Receive Date: 20100918
  Receipt Date: 20090326
  Transmission Date: 20110219
  Serious: No
  Sender: FDA-Public Use
  Company Number: US-WYE-H07940209

PATIENT
  Sex: Female
  Weight: 62.65 kg

DRUGS (1)
  1. PREMPRO [Suspect]
     Indication: MENOPAUSE
     Dosage: 0.45/1.5MG; FREQUENCY UNKNOWN
     Route: 048
     Dates: start: 19890101

REACTIONS (2)
  - BREAST CALCIFICATIONS [None]
  - MEMORY IMPAIRMENT [None]
